FAERS Safety Report 4342396-5 (Version None)
Quarter: 2004Q2

REPORT INFORMATION
  Report Type: 
  Country: None (occurrence: None)
  Receive Date: 20040416
  Receipt Date: 20040403
  Transmission Date: 20050107
  Serious: Yes (Other)
  Sender: FDA-Public Use
  Company Number: 2004008393

PATIENT
  Age: 56 Year
  Sex: Female

DRUGS (2)
  1. NORVASC [Suspect]
     Indication: HYPERTENSION
     Dosage: 5 MG (DAILY), ORAL
     Route: 048
     Dates: start: 20031215, end: 20040106
  2. ROSIGLITAZONE MALEATE [Suspect]
     Indication: DIABETES MELLITUS NON-INSULIN-DEPENDENT
     Dosage: 4 MG (DAILY), ORAL
     Route: 048
     Dates: start: 20031215, end: 20040106

REACTIONS (5)
  - BODY TEMPERATURE INCREASED [None]
  - DYSPHAGIA [None]
  - RASH [None]
  - SWELLING FACE [None]
  - URTICARIA [None]
